FAERS Safety Report 14683771 (Version 1)
Quarter: 2018Q1

REPORT INFORMATION
  Report Type: Spontaneous
  Country: IN (occurrence: IN)
  Receive Date: 20180327
  Receipt Date: 20180327
  Transmission Date: 20180509
  Serious: Yes (Death, Hospitalization)
  Sender: FDA-Public Use
  Company Number: IN-NOVITIUM PHARMA LLC-2018-IN-000005

PATIENT
  Age: 45 Year
  Sex: Female

DRUGS (3)
  1. RIFAMPICIN [Suspect]
     Active Substance: RIFAMPIN
     Indication: LEPROSY
     Dosage: 450 MG DAILY
     Route: 065
  2. DAPSONE. [Suspect]
     Active Substance: DAPSONE
     Indication: LEPROSY
     Dosage: 100 MG DAILY
     Route: 065
  3. PREDNISOLONE. [Suspect]
     Active Substance: PREDNISOLONE
     Indication: PRODUCT USED FOR UNKNOWN INDICATION
     Dosage: 30 MG ONCE A DAY
     Route: 048

REACTIONS (14)
  - Generalised oedema [Not Recovered/Not Resolved]
  - Diabetes mellitus [Not Recovered/Not Resolved]
  - Pneumonitis [Unknown]
  - Sepsis [Fatal]
  - Lower respiratory tract infection [Fatal]
  - Pyrexia [Not Recovered/Not Resolved]
  - Productive cough [Not Recovered/Not Resolved]
  - Dyspnoea exertional [Not Recovered/Not Resolved]
  - Drug reaction with eosinophilia and systemic symptoms [Fatal]
  - Acute kidney injury [Unknown]
  - Pulmonary hypertension [Unknown]
  - Dermatitis exfoliative generalised [Unknown]
  - Hypothyroidism [Not Recovered/Not Resolved]
  - Leukocytosis [Not Recovered/Not Resolved]
